FAERS Safety Report 8364472-2 (Version None)
Quarter: 2012Q2

REPORT INFORMATION
  Report Type: 
  Country: None (occurrence: None)
  Receive Date: 20120516
  Receipt Date: 20120509
  Transmission Date: 20120825
  Serious: Yes (Hospitalization, Other)
  Sender: FDA-Public Use
  Company Number: US-GLAXOSMITHKLINE-A0976973A

PATIENT
  Age: 51 Year
  Sex: Male

DRUGS (7)
  1. BACTRIM [Concomitant]
  2. ATOVAQUONE [Concomitant]
  3. ARZERRA [Suspect]
     Indication: CHRONIC LYMPHOCYTIC LEUKAEMIA
     Dosage: 2000MG WEEKLY
     Route: 042
     Dates: start: 20120301
  4. LEVOFLOXACIN [Concomitant]
  5. ALLOPURINOL [Concomitant]
  6. FLUCONAZOLE [Concomitant]
  7. ACYCLOVIR [Concomitant]

REACTIONS (2)
  - FEBRILE NEUTROPENIA [None]
  - BLOOD CREATININE INCREASED [None]
